FAERS Safety Report 4293769-0 (Version None)
Quarter: 2004Q1

REPORT INFORMATION
  Report Type: 
  Country: None (occurrence: None)
  Receive Date: 20040210
  Receipt Date: 20021127
  Transmission Date: 20041129
  Serious: Yes (Hospitalization, Disabling)
  Sender: FDA-Public Use
  Company Number: 2002IC000327

PATIENT
  Sex: Male
  Weight: 97 kg

DRUGS (9)
  1. DALMANE [Suspect]
     Indication: ANXIETY
     Dosage: 30 MG; DAILY; ORAL
     Route: 048
  2. DALMANE [Suspect]
     Indication: INSOMNIA
     Dosage: 30 MG; DAILY; ORAL
     Route: 048
  3. METHADONE HCL [Suspect]
     Indication: DRUG DEPENDENCE
     Dosage: 90 MG; DAILY; ORAL
     Route: 048
  4. RIVOTRIL (CLONAZEPAM) (GENERIC UNKNOWN) [Suspect]
     Indication: ANXIETY
     Dosage: 6 MG; DAILY; ORAL
     Route: 048
  5. RIVOTRIL (CLONAZEPAM) (GENERIC UNKNOWN) [Suspect]
     Indication: INSOMNIA
     Dosage: 6 MG; DAILY; ORAL
     Route: 048
  6. DORMICUM (MIDAZOLAM) (GENERIC UNKNOWN) [Suspect]
     Indication: ANXIETY
     Dosage: 15 MG; DAILY; ORAL
     Route: 048
  7. DORMICUM (MIDAZOLAM) (GENERIC UNKNOWN) [Suspect]
     Indication: INSOMNIA
     Dosage: 15 MG; DAILY; ORAL
     Route: 048
  8. BRUFEN (IBUPROFEN) (GENERIC UNKNOWN) [Suspect]
     Indication: BACK PAIN
     Dosage: 400 MG; ORAL
     Route: 048
     Dates: end: 20011231
  9. COCAINE [Concomitant]

REACTIONS (4)
  - DYSPNOEA [None]
  - GENERALISED OEDEMA [None]
  - HYPERSENSITIVITY [None]
  - RASH MACULO-PAPULAR [None]
